FAERS Safety Report 7945333-7 (Version None)
Quarter: 2011Q4

REPORT INFORMATION
  Report Type: 
  Country: None (occurrence: None)
  Receive Date: 20111129
  Receipt Date: 20110321
  Transmission Date: 20120403
  Serious: No
  Sender: FDA-Public Use
  Company Number: US-GLAXOSMITHKLINE-A0919207A

PATIENT
  Age: 51 Year
  Sex: Male

DRUGS (2)
  1. WELLBUTRIN SR [Suspect]
     Indication: ASTHENIA
     Dosage: 150MG PER DAY
     Route: 048
     Dates: start: 20110201
  2. LEXAPRO [Concomitant]

REACTIONS (1)
  - SOMNOLENCE [None]
